FAERS Safety Report 11580312 (Version 1)
Quarter: 2015Q3

REPORT INFORMATION
  Report Type: Report from Study
  Country: CA (occurrence: CA)
  Receive Date: 20150930
  Receipt Date: 20150930
  Transmission Date: 20151125
  Serious: Yes (Other)
  Sender: FDA-Public Use
  Company Number: PHHY2015CA115923

PATIENT
  Sex: Female

DRUGS (2)
  1. METHOTREXATE [Suspect]
     Active Substance: METHOTREXATE
     Indication: PRODUCT USED FOR UNKNOWN INDICATION
     Dosage: 20 MG, QW
     Route: 065
  2. CICLOSPORIN [Suspect]
     Active Substance: CYCLOSPORINE
     Indication: PSORIASIS
     Dosage: 4 MG/KG, QD
     Route: 065

REACTIONS (8)
  - Chronic hepatitis [Unknown]
  - Liver disorder [Unknown]
  - Drug ineffective [Unknown]
  - Blood creatinine increased [Unknown]
  - Drug intolerance [Unknown]
  - Nephropathy [Unknown]
  - Hepatic enzyme increased [Unknown]
  - Psoriasis [Unknown]
